FAERS Safety Report 20741759 (Version 1)
Quarter: 2022Q2

REPORT INFORMATION
  Report Type: Other
  Country: US (occurrence: None)
  Receive Date: 20220423
  Receipt Date: 20220423
  Transmission Date: 20220721
  Serious: Yes (Death)
  Sender: FDA-Public Use
  Company Number: US-ROCHE-3080623

PATIENT
  Sex: Male

DRUGS (1)
  1. VALCYTE [Suspect]
     Active Substance: VALGANCICLOVIR HYDROCHLORIDE
     Indication: Renal transplant
     Dosage: 1 PO 3 TIMES A WEEK(MONDAY,WEDNESDAY,FRIDAY)
     Route: 048

REACTIONS (2)
  - Death [Fatal]
  - Off label use [Unknown]
